FAERS Safety Report 7822663-0 (Version None)
Quarter: 2011Q4

REPORT INFORMATION
  Report Type: 
  Country: None (occurrence: None)
  Receive Date: 20111018
  Receipt Date: 20111014
  Transmission Date: 20120403
  Serious: Yes (Life-Threatening)
  Sender: FDA-Public Use
  Company Number: DE-ASTRAZENECA-2011SE61768

PATIENT
  Sex: Male

DRUGS (1)
  1. NAROPIN [Suspect]
     Dosage: 2 MG/10 ML; 20 ML ONCE/SINGLE ADMINISTRATION

REACTIONS (2)
  - HYPERSENSITIVITY [None]
  - RESPIRATORY DISTRESS [None]
